FAERS Safety Report 26164613 (Version 1)
Quarter: 2025Q4

REPORT INFORMATION
  Report Type: Spontaneous
  Country: CN (occurrence: CN)
  Receive Date: 20251216
  Receipt Date: 20251216
  Transmission Date: 20260118
  Serious: Yes (Hospitalization)
  Sender: BEIGENE
  Company Number: CN-BEONEMEDICINES-BGN-2025-022311

PATIENT
  Age: 60 Year
  Sex: Male
  Weight: 60 kg

DRUGS (16)
  1. TISLELIZUMAB [Suspect]
     Active Substance: TISLELIZUMAB
     Indication: Lung squamous cell carcinoma stage III
     Dosage: 200 MILLIGRAM, Q3WK
  2. TISLELIZUMAB [Suspect]
     Active Substance: TISLELIZUMAB
     Dosage: 200 MILLIGRAM, Q3WK
  3. TISLELIZUMAB [Suspect]
     Active Substance: TISLELIZUMAB
     Dosage: 200 MILLIGRAM, Q3WK
     Route: 041
  4. TISLELIZUMAB [Suspect]
     Active Substance: TISLELIZUMAB
     Dosage: 200 MILLIGRAM, Q3WK
     Route: 041
  5. TISLELIZUMAB [Suspect]
     Active Substance: TISLELIZUMAB
     Dosage: 200 MILLIGRAM, Q3WK
     Dates: start: 20251010, end: 20251121
  6. TISLELIZUMAB [Suspect]
     Active Substance: TISLELIZUMAB
     Dosage: 200 MILLIGRAM, Q3WK
     Dates: start: 20251010, end: 20251121
  7. TISLELIZUMAB [Suspect]
     Active Substance: TISLELIZUMAB
     Dosage: 200 MILLIGRAM, Q3WK
     Route: 041
     Dates: start: 20251010, end: 20251121
  8. TISLELIZUMAB [Suspect]
     Active Substance: TISLELIZUMAB
     Dosage: 200 MILLIGRAM, Q3WK
     Route: 041
     Dates: start: 20251010, end: 20251121
  9. CEFUROXIME SODIUM [Suspect]
     Active Substance: CEFUROXIME SODIUM
     Indication: Infection
     Dosage: 1.5 GRAM, BID
     Route: 041
     Dates: start: 20251109
  10. CEFUROXIME SODIUM [Suspect]
     Active Substance: CEFUROXIME SODIUM
     Dosage: 1.5 GRAM, BID
     Dates: start: 20251109
  11. METRONIDAZOLE\SODIUM CHLORIDE [Suspect]
     Active Substance: METRONIDAZOLE\SODIUM CHLORIDE
     Indication: Infection
     Dosage: 0.5 GRAM, BID
     Route: 041
     Dates: start: 20251109
  12. METRONIDAZOLE\SODIUM CHLORIDE [Suspect]
     Active Substance: METRONIDAZOLE\SODIUM CHLORIDE
     Dosage: 0.5 GRAM, BID
     Dates: start: 20251109
  13. PACLITAXEL [Concomitant]
     Active Substance: PACLITAXEL
     Indication: Lung squamous cell carcinoma stage III
     Dosage: 400 MILLIGRAM, DAY1
  14. PACLITAXEL [Concomitant]
     Active Substance: PACLITAXEL
     Dosage: 400 MILLIGRAM, DAY1
  15. CISPLATIN [Concomitant]
     Active Substance: CISPLATIN
     Indication: Lung squamous cell carcinoma stage III
     Dosage: 40 MILLIGRAM, DAY1 TO DAY3
  16. CISPLATIN [Concomitant]
     Active Substance: CISPLATIN
     Dosage: 40 MILLIGRAM, DAY1 TO DAY3

REACTIONS (3)
  - Stevens-Johnson syndrome [Recovering/Resolving]
  - Mass [Unknown]
  - Proctalgia [Unknown]

NARRATIVE: CASE EVENT DATE: 20251102
